FAERS Safety Report 13915983 (Version 1)
Quarter: 2017Q3

REPORT INFORMATION
  Report Type: Report from Study
  Country: None (occurrence: IT)
  Receive Date: 20170829
  Receipt Date: 20170829
  Transmission Date: 20171127
  Serious: Yes (Death)
  Sender: FDA-Public Use
  Company Number: IT-ABBVIE-17K-083-2084718-00

PATIENT
  Age: 70 Year
  Sex: Male
  Weight: 75 kg

DRUGS (1)
  1. DUODOPA [Suspect]
     Active Substance: CARBIDOPA\LEVODOPA
     Indication: PARKINSON^S DISEASE
     Dosage: MD 8,8+3??CR 2,9??ED 3
     Route: 050
     Dates: start: 20160718, end: 20170728

REACTIONS (2)
  - Cardiac arrest [Fatal]
  - Lung cancer metastatic [Fatal]

NARRATIVE: CASE EVENT DATE: 20170728
